FAERS Safety Report 9595143 (Version 1)
Quarter: 2013Q4

REPORT INFORMATION
  Report Type: Spontaneous
  Country: US (occurrence: US)
  Receive Date: 20131004
  Receipt Date: 20131004
  Transmission Date: 20140711
  Serious: Yes (Other)
  Sender: FDA-Public Use
  Company Number: US-BAYER-2013-119774

PATIENT
  Age: 51 Year
  Sex: Female

DRUGS (4)
  1. YAZ [Suspect]
  2. SYNTHROID [Concomitant]
     Dosage: UNK
     Dates: start: 20090416
  3. NEXIUM [Concomitant]
     Dosage: UNK
     Dates: start: 20090416
  4. ALIGN [Concomitant]
     Dosage: UNK
     Dates: start: 20090416

REACTIONS (2)
  - Deep vein thrombosis [None]
  - Thrombophlebitis superficial [None]
